FAERS Safety Report 7817706-4 (Version None)
Quarter: 2011Q4

REPORT INFORMATION
  Report Type: 
  Country: None (occurrence: None)
  Receive Date: 20111017
  Receipt Date: 20111007
  Transmission Date: 20120403
  Serious: Yes (Hospitalization)
  Sender: FDA-Public Use
  Company Number: GB-MPIJNJ-2011-04331

PATIENT

DRUGS (5)
  1. FLUOXETINE [Concomitant]
     Indication: DEPRESSION
     Dosage: 20 MG, UNK
     Route: 048
     Dates: end: 20110809
  2. ROSUVASTATIN [Concomitant]
     Dosage: 5 MG/KG, UNK
     Dates: end: 20110809
  3. VELCADE [Suspect]
     Indication: MULTIPLE MYELOMA
     Dosage: 2.4 MG, UNK
     Route: 058
  4. AMLODIPINE [Concomitant]
     Indication: HYPERTENSION
     Dosage: 10 MG, UNK
     Route: 048
     Dates: end: 20110809
  5. LOSARTAN POTASSIUM [Concomitant]
     Indication: HYPERTENSION
     Dosage: 100 MG, UNK
     Dates: end: 20110809

REACTIONS (4)
  - HYPONATRAEMIA [None]
  - EPILEPSY [None]
  - INCORRECT ROUTE OF DRUG ADMINISTRATION [None]
  - ORTHOSTATIC HYPOTENSION [None]
